FAERS Safety Report 4545991-3 (Version None)
Quarter: 2005Q1

REPORT INFORMATION
  Report Type: 
  Country: None (occurrence: None)
  Receive Date: 20050105
  Receipt Date: 20050105
  Transmission Date: 20050727
  Serious: Yes (Disabling)
  Sender: FDA-Public Use
  Company Number: None

PATIENT
  Age: 23 Year
  Sex: Female
  Weight: 47.6277 kg

DRUGS (1)
  1. PAXIL [Suspect]
     Indication: ANXIETY
     Dosage: 20MG   1/24 HRS.    ORAL
     Route: 048

REACTIONS (8)
  - ABNORMAL DREAMS [None]
  - BALANCE DISORDER [None]
  - DRUG WITHDRAWAL SYNDROME [None]
  - GASTROINTESTINAL DISORDER [None]
  - HYPERACUSIS [None]
  - INFLUENZA LIKE ILLNESS [None]
  - PHOTOPHOBIA [None]
  - SLEEP DISORDER [None]
